FAERS Safety Report 6169506-1 (Version None)
Quarter: 2009Q2

REPORT INFORMATION
  Report Type: 
  Country: None (occurrence: None)
  Receive Date: 20090424
  Receipt Date: 20081213
  Transmission Date: 20091009
  Serious: No
  Sender: FDA-Public Use
  Company Number: SPV1-2008-02769

PATIENT
  Sex: Male

DRUGS (2)
  1. VYVANSE [Suspect]
     Dosage: 20 MG, (FOR 8 WEEKS)
     Dates: start: 20081215
  2. DAYTRANA [Concomitant]

REACTIONS (2)
  - FORMICATION [None]
  - PARANOIA [None]
